FAERS Safety Report 10657424 (Version 2)
Quarter: 2014Q4

REPORT INFORMATION
  Report Type: Spontaneous
  Country: JP (occurrence: JP)
  Receive Date: 20141217
  Receipt Date: 20141217
  Transmission Date: 20150529
  Serious: Yes (Other)
  Sender: FDA-Public Use
  Company Number: JP-BAYER-2014-156050

PATIENT
  Age: 86 Year
  Sex: Male

DRUGS (1)
  1. STIVARGA [Suspect]
     Active Substance: REGORAFENIB
     Indication: COLORECTAL CANCER
     Dosage: UNKNOWN DOSE ON FOR 3 WEEKS AND OFF FOR 1 WEEK
     Route: 048
     Dates: start: 20140313, end: 20140924

REACTIONS (2)
  - Colorectal cancer [None]
  - Faeces discoloured [Unknown]

NARRATIVE: CASE EVENT DATE: 2014
